FAERS Safety Report 7602358-9 (Version None)
Quarter: 2011Q3

REPORT INFORMATION
  Report Type: 
  Country: None (occurrence: None)
  Receive Date: 20110712
  Receipt Date: 20110707
  Transmission Date: 20111222
  Serious: Yes (Death, Hospitalization, Other)
  Sender: FDA-Public Use
  Company Number: US-BRISTOL-MYERS SQUIBB COMPANY-15881709

PATIENT
  Age: 53 Year
  Sex: Male

DRUGS (1)
  1. HYDROXYUREA [Suspect]

REACTIONS (4)
  - DEATH [None]
  - CONTUSION [None]
  - HEADACHE [None]
  - CEREBRAL HAEMORRHAGE [None]
